FAERS Safety Report 8243846-4 (Version None)
Quarter: 2012Q1

REPORT INFORMATION
  Report Type: 
  Country: None (occurrence: None)
  Receive Date: 20120316
  Receipt Date: 20101102
  Transmission Date: 20120608
  Serious: Yes (Other)
  Sender: FDA-Public Use
  Company Number: PHHY2010US57530

PATIENT
  Sex: Female

DRUGS (5)
  1. EXTAVIA [Suspect]
     Indication: MULTIPLE SCLEROSIS
     Dosage: 0.3 MG EVERY OTHER DAY, SUBCUTANEOUS
     Route: 058
     Dates: start: 20100505
  2. VITAMIN D [Concomitant]
  3. IRON [Concomitant]
  4. PAROXETINE [Concomitant]
  5. LUNESTA [Concomitant]

REACTIONS (7)
  - PAIN [None]
  - DEPRESSION [None]
  - INJECTION SITE REACTION [None]
  - INJECTION SITE PAIN [None]
  - INJECTION SITE ERYTHEMA [None]
  - WRONG TECHNIQUE IN DRUG USAGE PROCESS [None]
  - INJECTION SITE MASS [None]
